FAERS Safety Report 7646711-6 (Version None)
Quarter: 2011Q3

REPORT INFORMATION
  Report Type: 
  Country: None (occurrence: None)
  Receive Date: 20110801
  Receipt Date: 20110721
  Transmission Date: 20111222
  Serious: Yes (Hospitalization, Other)
  Sender: FDA-Public Use
  Company Number: US-BAYER-2011-006006

PATIENT
  Age: 41 Year
  Sex: Female
  Weight: 58.05 kg

DRUGS (1)
  1. YAZ [Suspect]
     Indication: PRODUCT USED FOR UNKNOWN INDICATION
     Dosage: UNK
     Route: 048
     Dates: start: 20090701, end: 20090901

REACTIONS (8)
  - BUNDLE BRANCH BLOCK LEFT [None]
  - PALPITATIONS [None]
  - PAIN [None]
  - MYOCARDIAL INFARCTION [None]
  - DYSPNOEA [None]
  - CHEST PAIN [None]
  - THROMBOSIS [None]
  - HYPERHIDROSIS [None]
